FAERS Safety Report 16841283 (Version 3)
Quarter: 2020Q3

REPORT INFORMATION
  Report Type: Report from Study
  Country: None (occurrence: US)
  Receive Date: 20190923
  Receipt Date: 20200915
  Transmission Date: 20201102
  Serious: Yes (Other)
  Sender: FDA-Public Use
  Company Number: US-ABBVIE-19K-163-2925259-00

PATIENT
  Sex: Female

DRUGS (2)
  1. HUMIRA [Suspect]
     Active Substance: ADALIMUMAB
     Indication: RHEUMATOID ARTHRITIS
     Route: 058
  2. HUMIRA [Suspect]
     Active Substance: ADALIMUMAB
     Route: 058
     Dates: start: 20191022

REACTIONS (3)
  - Intervertebral disc protrusion [Unknown]
  - Nasopharyngitis [Not Recovered/Not Resolved]
  - Paralysis [Unknown]

NARRATIVE: CASE EVENT DATE: 2019
